FAERS Safety Report 7979582-9 (Version None)
Quarter: 2011Q4

REPORT INFORMATION
  Report Type: 
  Country: None (occurrence: None)
  Receive Date: 20111213
  Receipt Date: 20111213
  Transmission Date: 20120403
  Serious: Yes (Hospitalization)
  Sender: FDA-Public Use
  Company Number: None

PATIENT
  Age: 53 Year
  Sex: Male
  Weight: 86.2 kg

DRUGS (2)
  1. DIPHENHYDRAMINE HCL [Suspect]
     Indication: PAIN
  2. ZOLPIDEM [Suspect]
     Indication: INSOMNIA
     Dosage: 10 MG AT BEDTIME PO
     Route: 048
     Dates: start: 20110530, end: 20110615

REACTIONS (1)
  - CONFUSIONAL STATE [None]
